FAERS Safety Report 24380240 (Version 2)
Quarter: 2024Q4

REPORT INFORMATION
  Report Type: Spontaneous
  Country: US (occurrence: US)
  Receive Date: 20240930
  Receipt Date: 20241022
  Transmission Date: 20250115
  Serious: Yes (Other)
  Sender: NIPPON SHINYAKU
  Company Number: US-NIPPON SHINYAKU-NIP-2024-000051

PATIENT
  Sex: Male

DRUGS (10)
  1. VILTEPSO [Suspect]
     Active Substance: VILTOLARSEN
     Indication: Product used for unknown indication
     Dosage: UNK
     Route: 065
     Dates: start: 202208
  2. ENALAPRIL [Concomitant]
     Active Substance: ENALAPRIL
     Indication: Cardiac disorder
     Dosage: 3 MG, BID
     Route: 065
  3. VAMOROLONE [Concomitant]
     Active Substance: VAMOROLONE
     Indication: Product used for unknown indication
     Dosage: UNK UNK, QD
     Route: 065
     Dates: start: 2020
  4. VAMOROLONE [Concomitant]
     Active Substance: VAMOROLONE
     Dosage: 2 MG/KG, QD
     Route: 065
  5. FLUOXETINE [Concomitant]
     Active Substance: FLUOXETINE HYDROCHLORIDE
     Indication: Sleep disorder
     Dosage: 10 MG, QD
     Route: 065
     Dates: start: 2023
  6. FLUOXETINE [Concomitant]
     Active Substance: FLUOXETINE HYDROCHLORIDE
     Indication: Affective disorder
  7. TRAZODONE [Concomitant]
     Active Substance: TRAZODONE HYDROCHLORIDE
     Indication: Sleep disorder
     Dosage: 50 MG, QHS
     Route: 065
     Dates: start: 2023
  8. TRAZODONE [Concomitant]
     Active Substance: TRAZODONE HYDROCHLORIDE
     Indication: Affective disorder
  9. CLONAZEPAM [Concomitant]
     Active Substance: CLONAZEPAM
     Indication: Sleep disorder
     Dosage: 0.25 MG, QD, PRN
     Route: 065
     Dates: start: 2023
  10. CLONAZEPAM [Concomitant]
     Active Substance: CLONAZEPAM
     Indication: Affective disorder

REACTIONS (1)
  - Hypokalaemia [Not Recovered/Not Resolved]
